FAERS Safety Report 5829716-7 (Version None)
Quarter: 2008Q3

REPORT INFORMATION
  Report Type: 
  Country: None (occurrence: None)
  Receive Date: 20080801
  Receipt Date: 20080729
  Transmission Date: 20090109
  Serious: Yes (Life-Threatening, Hospitalization)
  Sender: FDA-Public Use
  Company Number: ES-WYE-H04356208

PATIENT
  Sex: Male
  Weight: 87 kg

DRUGS (11)
  1. SIROLIMUS [Suspect]
     Indication: PROPHYLAXIS AGAINST TRANSPLANT REJECTION
     Dosage: ^1-1-0/ EVERY THREE DAYS^
     Route: 048
     Dates: start: 20080304, end: 20080529
  2. PREDNISONE [Concomitant]
     Indication: IMMUNOSUPPRESSION
     Route: 065
     Dates: start: 20080304
  3. CHLORTHALIDONE [Concomitant]
     Indication: DIURETIC THERAPY
     Route: 065
     Dates: start: 20070605, end: 20080704
  4. LOSARTAN POTASSIUM AND HYDROCHLOROTHIAZIDE [Concomitant]
     Indication: HYPERTENSION
     Dosage: 100MG/25MG ONCE DAILY
     Route: 065
     Dates: start: 20050506
  5. LESCOL [Concomitant]
     Indication: DYSLIPIDAEMIA
     Route: 065
     Dates: start: 20050506
  6. EZETROL [Concomitant]
     Indication: DYSLIPIDAEMIA
     Route: 065
     Dates: start: 20070606
  7. CELLCEPT [Concomitant]
     Indication: PROPHYLAXIS AGAINST TRANSPLANT REJECTION
     Route: 065
     Dates: start: 20080430, end: 20080530
  8. CELLCEPT [Concomitant]
     Route: 065
     Dates: start: 20080531, end: 20080627
  9. CELLCEPT [Concomitant]
     Route: 065
     Dates: start: 20080628, end: 20080724
  10. CELLCEPT [Concomitant]
     Route: 065
     Dates: start: 20080725
  11. OMEPRAZOLE [Concomitant]
     Indication: PROPHYLAXIS
     Route: 065
     Dates: start: 20021201

REACTIONS (1)
  - HEART TRANSPLANT REJECTION [None]
